FAERS Safety Report 15017140 (Version 1)
Quarter: 2018Q2

REPORT INFORMATION
  Report Type: Spontaneous
  Country: US (occurrence: US)
  Receive Date: 20180615
  Receipt Date: 20180615
  Transmission Date: 20180711
  Serious: No
  Sender: FDA-Public Use
  Company Number: US-IPSEN BIOPHARMACEUTICALS, INC.-2018-08469

PATIENT
  Age: 39 Year
  Sex: Female

DRUGS (2)
  1. DYSPORT [Suspect]
     Active Substance: ABOBOTULINUMTOXINA
     Indication: SKIN COSMETIC PROCEDURE
     Dosage: NOT REPORTED
     Route: 065
     Dates: start: 20180516, end: 20180516
  2. RESTYLANE DEFYNE [Suspect]
     Active Substance: HYALURONIC ACID\LIDOCAINE
     Indication: SKIN COSMETIC PROCEDURE
     Dates: start: 20180516, end: 20180516

REACTIONS (2)
  - Injection site mass [Recovered/Resolved]
  - Rash erythematous [Recovered/Resolved]

NARRATIVE: CASE EVENT DATE: 20180516
